FAERS Safety Report 22074415 (Version 3)
Quarter: 2023Q4

REPORT INFORMATION
  Report Type: Report from Study
  Country: US (occurrence: US)
  Receive Date: 20230308
  Receipt Date: 20231208
  Transmission Date: 20240110
  Serious: Yes (Hospitalization)
  Sender: FDA-Public Use
  Company Number: US-ORG100014127-2023000208

PATIENT
  Age: 65 Year
  Sex: Male

DRUGS (5)
  1. LYSODREN [Suspect]
     Active Substance: MITOTANE
     Indication: Adrenocortical carcinoma
     Dosage: 500 MG: TAKE ONE TABLET BY MOUTH TWICE DAILY
     Route: 048
     Dates: start: 20160318, end: 20230211
  2. LYSODREN [Suspect]
     Active Substance: MITOTANE
     Indication: Adrenocortical carcinoma
     Route: 048
     Dates: start: 20230219, end: 202310
  3. FLUDROCORT TAB 0.1MG [Concomitant]
     Indication: Product used for unknown indication
  4. MULTIVITAMIN TAB [Concomitant]
     Indication: Product used for unknown indication
  5. XARELTO [Concomitant]
     Active Substance: RIVAROXABAN
     Indication: Product used for unknown indication

REACTIONS (1)
  - Blood disorder [Unknown]

NARRATIVE: CASE EVENT DATE: 20230211
